FAERS Safety Report 22256118 (Version 2)
Quarter: 2023Q2

REPORT INFORMATION
  Report Type: Spontaneous
  Country: IT (occurrence: IT)
  Receive Date: 20230426
  Receipt Date: 20230511
  Transmission Date: 20230722
  Serious: Yes (Life-Threatening, Hospitalization)
  Sender: FDA-Public Use
  Company Number: None

PATIENT
  Age: 79 Year
  Sex: Male
  Weight: 64 kg

DRUGS (4)
  1. TEICOPLANIN [Suspect]
     Active Substance: TEICOPLANIN
     Indication: Product used for unknown indication
     Dosage: 600 MG, Q24H (TEICOPLANINA 600 MG IN 100 SF DIE)
     Route: 042
     Dates: start: 20230410, end: 20230411
  2. PANTOPRAZOLE SODIUM [Concomitant]
     Active Substance: PANTOPRAZOLE SODIUM
     Indication: Gastritis
     Dosage: 40 MG (PANTOPRAZOLO 40 MG IN 100 SF EV)
     Route: 042
     Dates: start: 20230301
  3. LEVETIRACETAM [Concomitant]
     Active Substance: LEVETIRACETAM
     Indication: Epilepsy
     Dosage: 500 MG (500 MG X 3 DIE PER SNG)
     Route: 048
  4. ENOXAPARIN [Concomitant]
     Active Substance: ENOXAPARIN
     Indication: Product used for unknown indication
     Dosage: 6000 IU (ENOXAPARINA 6000 U 1 FL SC DIE)
     Route: 065

REACTIONS (2)
  - Acute kidney injury [Not Recovered/Not Resolved]
  - Skin reaction [Recovering/Resolving]

NARRATIVE: CASE EVENT DATE: 20230411
